FAERS Safety Report 14290447 (Version 14)
Quarter: 2018Q3

REPORT INFORMATION
  Report Type: Report from Study
  Country: US (occurrence: US)
  Receive Date: 20171215
  Receipt Date: 20180813
  Transmission Date: 20181010
  Serious: Yes (Other)
  Sender: FDA-Public Use
  Company Number: US-JNJFOC-20170212596

PATIENT
  Age: 67 Year
  Sex: Female

DRUGS (9)
  1. IMBRUVICA [Suspect]
     Active Substance: IBRUTINIB
     Indication: CHRONIC LYMPHOCYTIC LEUKAEMIA
     Route: 048
     Dates: start: 20180301
  2. EUCERIN [Concomitant]
     Active Substance: ENSULIZOLE\EUCERIN\OCTINOXATE\OCTISALATE\TITANIUM DIOXIDE\ZINC OXIDE
  3. IMBRUVICA [Suspect]
     Active Substance: IBRUTINIB
     Indication: CHRONIC LYMPHOCYTIC LEUKAEMIA
     Route: 048
     Dates: start: 20170130
  4. IMBRUVICA [Suspect]
     Active Substance: IBRUTINIB
     Indication: CHRONIC LYMPHOCYTIC LEUKAEMIA
     Route: 048
     Dates: start: 2017, end: 20180415
  5. VITAMIN D [Concomitant]
     Active Substance: CHOLECALCIFEROL
     Dosage: UNK, Q WEEKLY
  6. IMBRUVICA [Suspect]
     Active Substance: IBRUTINIB
     Indication: CHRONIC LYMPHOCYTIC LEUKAEMIA
     Route: 048
     Dates: start: 20170126, end: 20180415
  7. IMBRUVICA [Suspect]
     Active Substance: IBRUTINIB
     Indication: CHRONIC LYMPHOCYTIC LEUKAEMIA
     Route: 048
     Dates: start: 20180104, end: 20180202
  8. IMBRUVICA [Suspect]
     Active Substance: IBRUTINIB
     Indication: CHRONIC LYMPHOCYTIC LEUKAEMIA
     Route: 048
     Dates: end: 20180201
  9. IMBRUVICA [Suspect]
     Active Substance: IBRUTINIB
     Indication: CHRONIC LYMPHOCYTIC LEUKAEMIA
     Route: 048
     Dates: start: 20180301, end: 20180415

REACTIONS (53)
  - Intervertebral disc protrusion [Not Recovered/Not Resolved]
  - Depression [Recovered/Resolved]
  - Computerised tomogram abnormal [Recovered/Resolved]
  - Dysgeusia [Unknown]
  - Nerve compression [Unknown]
  - Lymphocyte count increased [Recovering/Resolving]
  - Oropharyngeal pain [Recovering/Resolving]
  - Pain in extremity [Unknown]
  - Fall [Recovering/Resolving]
  - Muscle spasms [Not Recovered/Not Resolved]
  - Contusion [Not Recovered/Not Resolved]
  - Oral mucosal blistering [Recovering/Resolving]
  - Dry skin [Recovering/Resolving]
  - Dysphonia [Recovering/Resolving]
  - Drug dose omission [Unknown]
  - Weight decreased [Recovering/Resolving]
  - Headache [Recovered/Resolved]
  - Onychoclasis [Recovering/Resolving]
  - Nausea [Recovering/Resolving]
  - Lymphadenopathy [Recovered/Resolved]
  - Impaired healing [Recovering/Resolving]
  - Sensation of foreign body [Not Recovered/Not Resolved]
  - Skin fissures [Recovering/Resolving]
  - Fatigue [Recovering/Resolving]
  - Nasopharyngitis [Unknown]
  - Foot fracture [Recovering/Resolving]
  - Memory impairment [Not Recovered/Not Resolved]
  - Eructation [Unknown]
  - Joint injury [Unknown]
  - Feeling abnormal [Recovering/Resolving]
  - Diarrhoea [Recovering/Resolving]
  - White blood cell count abnormal [Recovered/Resolved]
  - Vomiting [Unknown]
  - Arthralgia [Not Recovered/Not Resolved]
  - Insomnia [Recovered/Resolved]
  - Hair texture abnormal [Unknown]
  - Hypertension [Unknown]
  - Peripheral swelling [Unknown]
  - Bone pain [Unknown]
  - Malaise [Unknown]
  - Gastroenteritis viral [Unknown]
  - Back pain [Recovering/Resolving]
  - Facial paralysis [Unknown]
  - Incorrect dose administered [Unknown]
  - Abdominal discomfort [Unknown]
  - Off label use [Unknown]
  - Pain [Unknown]
  - Somnolence [Unknown]
  - Hypoaesthesia [Unknown]
  - Paraesthesia [Unknown]
  - Oral herpes [Recovered/Resolved]
  - Arthritis [Not Recovered/Not Resolved]
  - Anaemia [Recovering/Resolving]

NARRATIVE: CASE EVENT DATE: 20170126
